FAERS Safety Report 24334814 (Version 4)
Quarter: 2024Q4

REPORT INFORMATION
  Report Type: Spontaneous
  Country: US (occurrence: US)
  Receive Date: 20240918
  Receipt Date: 20241114
  Transmission Date: 20250115
  Serious: Yes (Other)
  Sender: JOHNSON AND JOHNSON
  Company Number: US-VIIV HEALTHCARE LIMITED-US2024AMR114096

PATIENT
  Age: 34 Year
  Sex: Male

DRUGS (2)
  1. RILPIVIRINE [Suspect]
     Active Substance: RILPIVIRINE
     Indication: HIV infection
     Dosage: UNK
     Route: 065
     Dates: start: 2021, end: 2021
  2. CABOTEGRAVIR [Suspect]
     Active Substance: CABOTEGRAVIR
     Indication: HIV infection
     Dosage: UNK
     Route: 065
     Dates: start: 2021, end: 2021

REACTIONS (7)
  - Neuropathy peripheral [Recovered/Resolved]
  - Injection site pain [Recovered/Resolved]
  - Phantom limb syndrome [Recovered/Resolved]
  - Injection site nodule [Recovered/Resolved]
  - Paraesthesia [Recovered/Resolved]
  - Pain in extremity [Recovered/Resolved]
  - Pyrexia [Recovered/Resolved]
